FAERS Safety Report 17671952 (Version 1)
Quarter: 2020Q2

REPORT INFORMATION
  Report Type: Spontaneous
  Country: US (occurrence: US)
  Receive Date: 20200415
  Receipt Date: 20200415
  Transmission Date: 20200713
  Serious: Yes (Other)
  Sender: FDA-Public Use
  Company Number: US-FRESENIUS KABI-FK202003771

PATIENT
  Age: 15 Year
  Sex: Male
  Weight: 64 kg

DRUGS (1)
  1. DEXMEDETOMIDINE HCL INJECTION [Suspect]
     Active Substance: DEXMEDETOMIDINE HYDROCHLORIDE
     Indication: SEDATIVE THERAPY
     Dates: start: 20200403, end: 20200403

REACTIONS (1)
  - Atrioventricular dissociation [Recovered/Resolved]

NARRATIVE: CASE EVENT DATE: 20200403
